FAERS Safety Report 6039368-1 (Version None)
Quarter: 2009Q1

REPORT INFORMATION
  Report Type: 
  Country: None (occurrence: None)
  Receive Date: 20090114
  Receipt Date: 20090105
  Transmission Date: 20090719
  Serious: Yes (Hospitalization, Other)
  Sender: FDA-Public Use
  Company Number: DEP_00202_2009

PATIENT
  Age: 77 Year
  Sex: Male

DRUGS (6)
  1. METFORMIN HCL [Suspect]
     Indication: DRUG USE FOR UNKNOWN INDICATION
     Dosage: (850 MG LX/8 HOURS)
  2. GLYCAZIDE [Concomitant]
  3. NEBIVOLOL [Concomitant]
  4. TAMSULOSIN [Concomitant]
  5. METAMIZOL /00039502/ [Concomitant]
  6. ACETAMINOPHEN [Concomitant]

REACTIONS (14)
  - BLOOD GLUCOSE INCREASED [None]
  - BODY TEMPERATURE DECREASED [None]
  - CYANOSIS CENTRAL [None]
  - DIARRHOEA [None]
  - DRUG TOXICITY [None]
  - HAEMODIALYSIS [None]
  - LACTIC ACIDOSIS [None]
  - METABOLIC ACIDOSIS [None]
  - METASTASES TO BONE [None]
  - METASTASES TO SPINE [None]
  - NEUROGENIC BLADDER [None]
  - PROSTATE CANCER METASTATIC [None]
  - RENAL FAILURE ACUTE [None]
  - SPINAL CORD COMPRESSION [None]
